FAERS Safety Report 19486447 (Version 1)
Quarter: 2021Q3

REPORT INFORMATION
  Report Type: Spontaneous
  Country: US (occurrence: US)
  Receive Date: 20210702
  Receipt Date: 20210702
  Transmission Date: 20211014
  Serious: Yes (Death, Hospitalization, Disabling)
  Sender: FDA-Public Use
  Company Number: US-TORRENT-00011157

PATIENT
  Age: 28 Year
  Sex: Female

DRUGS (1)
  1. SILDENAFIL. [Suspect]
     Active Substance: SILDENAFIL
     Indication: PULMONARY HYPERTENSION
     Dosage: UNKNOWN

REACTIONS (3)
  - Myocarditis [Fatal]
  - Left-to-right cardiac shunt [Fatal]
  - Condition aggravated [Fatal]
